FAERS Safety Report 6410303-7 (Version None)
Quarter: 2009Q4

REPORT INFORMATION
  Report Type: 
  Country: None (occurrence: None)
  Receive Date: 20091022
  Receipt Date: 20091015
  Transmission Date: 20100525
  Serious: Yes (Hospitalization, Other)
  Sender: FDA-Public Use
  Company Number: US-ABBOTT-09P-163-0603119-00

PATIENT
  Sex: Female
  Weight: 97.61 kg

DRUGS (6)
  1. HUMIRA [Suspect]
     Indication: RHEUMATOID ARTHRITIS
     Route: 058
     Dates: start: 20060601, end: 20061009
  2. HUMIRA [Suspect]
     Route: 058
     Dates: start: 20061029, end: 20090914
  3. HUMIRA [Suspect]
     Route: 058
     Dates: start: 20091011
  4. MORPHINE [Concomitant]
     Indication: DRUG USE FOR UNKNOWN INDICATION
  5. XANAX [Concomitant]
     Indication: DRUG USE FOR UNKNOWN INDICATION
  6. UNKNOWN BLOOD PRESSURE MEDICATION [Concomitant]
     Indication: HYPERTENSION

REACTIONS (8)
  - ANKLE OPERATION [None]
  - DEVICE DISLOCATION [None]
  - MOBILITY DECREASED [None]
  - PAIN IN EXTREMITY [None]
  - PNEUMONIA [None]
  - RESPIRATORY DISTRESS [None]
  - SENSORY DISTURBANCE [None]
  - TOOTH EXTRACTION [None]
